FAERS Safety Report 6197133-9 (Version None)
Quarter: 2009Q2

REPORT INFORMATION
  Report Type: 
  Country: None (occurrence: None)
  Receive Date: 20090518
  Receipt Date: 20090518
  Transmission Date: 20091009
  Serious: Yes (Hospitalization)
  Sender: FDA-Public Use
  Company Number: None

PATIENT
  Age: 48 Year
  Sex: Male
  Weight: 74.8435 kg

DRUGS (1)
  1. CEPHALEXIN [Suspect]
     Indication: INFECTED CYST
     Dosage: 500MG 2 QUID PO
     Route: 048
     Dates: start: 20080606, end: 20080806

REACTIONS (2)
  - TENDON RUPTURE [None]
  - TENDONITIS [None]
